FAERS Safety Report 7655336-8 (Version None)
Quarter: 2011Q3

REPORT INFORMATION
  Report Type: 
  Country: None (occurrence: None)
  Receive Date: 20110729
  Receipt Date: 20110720
  Transmission Date: 20111222
  Serious: Yes (Death)
  Sender: FDA-Public Use
  Company Number: 988329

PATIENT
  Sex: Female

DRUGS (1)
  1. METHOTREXATE [Suspect]
     Indication: BONE SARCOMA

REACTIONS (9)
  - HYPOPHAGIA [None]
  - PYREXIA [None]
  - NAUSEA [None]
  - NEUTROPENIA [None]
  - BRONCHOPULMONARY ASPERGILLOSIS [None]
  - MUCOSAL INFLAMMATION [None]
  - CONSTIPATION [None]
  - COMMUNICATION DISORDER [None]
  - THROMBOCYTOPENIA [None]
